FAERS Safety Report 9377551 (Version 5)
Quarter: 2013Q4

REPORT INFORMATION
  Report Type: Report from Study
  Country: DE (occurrence: DE)
  Receive Date: 20130701
  Receipt Date: 20131113
  Transmission Date: 20140711
  Serious: Yes (Other)
  Sender: FDA-Public Use
  Company Number: DE-EISAI INC-E7389-03972-CLI-DE

PATIENT
  Age: 48 Year
  Sex: Female
  Weight: 57 kg

DRUGS (4)
  1. HALAVEN [Suspect]
     Indication: PRODUCT USED FOR UNKNOWN INDICATION
     Route: 041
     Dates: start: 20120731, end: 20130625
  2. LAPATINIB [Suspect]
     Route: 048
     Dates: start: 20120731, end: 20130625
  3. TRASTUZUMAB [Concomitant]
     Indication: PRODUCT USED FOR UNKNOWN INDICATION
     Route: 065
     Dates: start: 20110928, end: 20120117
  4. TRASTUZUMAB [Concomitant]
     Route: 065
     Dates: start: 20120124, end: 20120710

REACTIONS (2)
  - Macular oedema [Not Recovered/Not Resolved]
  - Retinal haemorrhage [Not Recovered/Not Resolved]
